FAERS Safety Report 7228116-5 (Version None)
Quarter: 2011Q1

REPORT INFORMATION
  Report Type: 
  Country: None (occurrence: None)
  Receive Date: 20110114
  Receipt Date: 20110111
  Transmission Date: 20110831
  Serious: Yes (Disabling, Other)
  Sender: FDA-Public Use
  Company Number: US-PFIZER INC-2011007569

PATIENT
  Sex: Female

DRUGS (6)
  1. CELEBREX [Suspect]
  2. NILOTINIB [Suspect]
  3. SPRYCEL [Suspect]
  4. GLEEVEC [Suspect]
  5. FLEXERIL [Suspect]
  6. NEURONTIN [Suspect]

REACTIONS (4)
  - MYALGIA [None]
  - ARTHRALGIA [None]
  - MYOSITIS [None]
  - BLOOD CREATINE PHOSPHOKINASE INCREASED [None]
